FAERS Safety Report 8113811-6 (Version None)
Quarter: 2012Q1

REPORT INFORMATION
  Report Type: 
  Country: None (occurrence: None)
  Receive Date: 20120203
  Receipt Date: 20120125
  Transmission Date: 20120608
  Serious: Yes (Hospitalization)
  Sender: FDA-Public Use
  Company Number: DE-ELI_LILLY_AND_COMPANY-DE201201001649

PATIENT
  Sex: Male

DRUGS (5)
  1. BYETTA [Suspect]
     Indication: DIABETES MELLITUS
     Dosage: 10 UG, UNKNOWN
     Route: 058
     Dates: start: 20110601
  2. METFORMIN HCL [Concomitant]
     Dosage: 800 MG, BID
  3. GLYBURIDE [Concomitant]
  4. NEBIVOLOL [Concomitant]
  5. CORVO [Concomitant]

REACTIONS (7)
  - EXCORIATION [None]
  - DIABETIC FOOT [None]
  - TENDON INJURY [None]
  - FOOT DEFORMITY [None]
  - WEIGHT DECREASED [None]
  - INFLAMMATION [None]
  - ACQUIRED CLAW TOE [None]
